FAERS Safety Report 21118316 (Version 1)
Quarter: 2022Q3

REPORT INFORMATION
  Report Type: Spontaneous
  Country: FR (occurrence: FR)
  Receive Date: 20220722
  Receipt Date: 20220722
  Transmission Date: 20221026
  Serious: Yes (Hospitalization)
  Sender: FDA-Public Use
  Company Number: None

PATIENT
  Age: 70 Year
  Sex: Female

DRUGS (16)
  1. RITUXIMAB [Suspect]
     Active Substance: RITUXIMAB
     Indication: Lymphoma
     Dosage: 4 INJECTIONS AU TOTAL
     Route: 065
     Dates: start: 20220408, end: 20220429
  2. CHLORAMBUCIL [Suspect]
     Active Substance: CHLORAMBUCIL
     Indication: Lymphoma
     Route: 065
     Dates: start: 20220408, end: 20220517
  3. VALACYCLOVIR HYDROCHLORIDE [Suspect]
     Active Substance: VALACYCLOVIR HYDROCHLORIDE
     Indication: Prophylaxis
     Route: 065
     Dates: start: 20220408, end: 20220519
  4. PERINDOPRIL [Concomitant]
     Active Substance: PERINDOPRIL
  5. ESIDREX [Concomitant]
     Active Substance: HYDROCHLOROTHIAZIDE
  6. OROCAL [Concomitant]
  7. BISOPROLOL FUMARATE [Concomitant]
     Active Substance: BISOPROLOL FUMARATE
  8. LERCANIDIPINE HYDROCHLORIDE [Concomitant]
     Active Substance: LERCANIDIPINE HYDROCHLORIDE
  9. FERROUS SULFATE [Concomitant]
     Active Substance: FERROUS SULFATE
  10. LEVOTHYROXINE [Concomitant]
     Active Substance: LEVOTHYROXINE
  11. ESCITALOPRAM OXALATE [Concomitant]
     Active Substance: ESCITALOPRAM OXALATE
  12. .ALPHA.-TOCOPHEROL ACETATE, D- [Concomitant]
     Active Substance: .ALPHA.-TOCOPHEROL ACETATE, D-
  13. KARDEGIC [Concomitant]
     Active Substance: ASPIRIN DL-LYSINE
  14. LIPTRUZET [Concomitant]
     Active Substance: ATORVASTATIN CALCIUM\EZETIMIBE
  15. PANTOPRAZOLE [Concomitant]
     Active Substance: PANTOPRAZOLE
  16. ZINC [Concomitant]
     Active Substance: ZINC

REACTIONS (1)
  - Drug reaction with eosinophilia and systemic symptoms [Recovering/Resolving]

NARRATIVE: CASE EVENT DATE: 20220504
